FAERS Safety Report 4913704-9 (Version None)
Quarter: 2006Q1

REPORT INFORMATION
  Report Type: 
  Country: None (occurrence: None)
  Receive Date: 20060216
  Receipt Date: 20060127
  Transmission Date: 20060701
  Serious: Yes (Hospitalization)
  Sender: FDA-Public Use
  Company Number: US-SOLVAY-00206000334

PATIENT
  Age: 58 Year
  Sex: Male

DRUGS (1)
  1. ANDROGEL [Suspect]
     Indication: HYPOGONADISM
     Dosage: DAILY DOSE: UNKNOWN, TAKES ONCE A DAY
     Route: 062
     Dates: end: 20060206

REACTIONS (2)
  - CHEST PAIN [None]
  - DYSPNOEA [None]
